FAERS Safety Report 22243003 (Version 7)
Quarter: 2024Q1

REPORT INFORMATION
  Report Type: Spontaneous
  Country: US (occurrence: US)
  Receive Date: 20230424
  Receipt Date: 20240312
  Transmission Date: 20240409
  Serious: No
  Sender: FDA-Public Use
  Company Number: US-BIOVITRUM-2023-US-009139

PATIENT
  Age: 65 Year
  Sex: Female

DRUGS (2)
  1. KINERET [Suspect]
     Active Substance: ANAKINRA
     Indication: Still^s disease
     Dosage: 100MG, DAILY
     Route: 058
     Dates: start: 20210309
  2. KINERET [Suspect]
     Active Substance: ANAKINRA
     Dosage: 100MG, DAILY
     Route: 058
     Dates: start: 20190513

REACTIONS (14)
  - Off label use [Not Recovered/Not Resolved]
  - Nasopharyngitis [Unknown]
  - Cough [Unknown]
  - Emotional disorder [Recovering/Resolving]
  - Back pain [Unknown]
  - Product dose omission issue [Unknown]
  - Arthritis [Unknown]
  - Pain [Unknown]
  - Pruritus [Unknown]
  - Fungal infection [Unknown]
  - Gallbladder disorder [Unknown]
  - Gastrointestinal disorder [Unknown]
  - Hypertension [Unknown]
  - Nail disorder [Unknown]

NARRATIVE: CASE EVENT DATE: 20210309
